FAERS Safety Report 10178566 (Version 1)
Quarter: 2014Q2

REPORT INFORMATION
  Report Type: Spontaneous
  Country: US (occurrence: None)
  Receive Date: 20140516
  Receipt Date: 20140516
  Transmission Date: 20141212
  Serious: Yes (Disabling)
  Sender: FDA-Public Use
  Company Number: None

PATIENT
  Age: 38 Year
  Sex: Female
  Weight: 78.02 kg

DRUGS (3)
  1. LEVAQUIN [Suspect]
     Indication: SINUSITIS
     Dosage: 1 TAB
     Route: 048
     Dates: start: 20140506, end: 20140512
  2. LEVAQUIN [Suspect]
     Indication: OTITIS MEDIA
     Dosage: 1 TAB
     Route: 048
     Dates: start: 20140506, end: 20140512
  3. LEVAQUIN [Suspect]
     Indication: DERMAL CYST
     Dosage: 1 TAB
     Route: 048
     Dates: start: 20140506, end: 20140512

REACTIONS (1)
  - Tendonitis [None]
